FAERS Safety Report 14104869 (Version 3)
Quarter: 2017Q4

REPORT INFORMATION
  Report Type: Spontaneous
  Country: US (occurrence: US)
  Receive Date: 20171018
  Receipt Date: 20171219
  Transmission Date: 20180321
  Serious: Yes (Disabling, Other)
  Sender: FDA-Public Use
  Company Number: US-009507513-1710USA005741

PATIENT
  Age: 6 Year
  Sex: Male
  Weight: 22.18 kg

DRUGS (3)
  1. LORATADINE. [Concomitant]
     Active Substance: LORATADINE
     Route: 048
  2. SINGULAIR [Suspect]
     Active Substance: MONTELUKAST SODIUM
     Indication: ASTHMA
     Dosage: 4 MG, UNK
     Route: 048
     Dates: start: 2014
  3. SINGULAIR [Suspect]
     Active Substance: MONTELUKAST SODIUM
     Indication: SEASONAL ALLERGY
     Dosage: 5 MG, DAILY
     Route: 048
     Dates: start: 20161230, end: 20170915

REACTIONS (9)
  - Suicidal ideation [Not Recovered/Not Resolved]
  - Obsessive-compulsive disorder [Not Recovered/Not Resolved]
  - Staring [Not Recovered/Not Resolved]
  - Paediatric autoimmune neuropsychiatric disorders associated with streptococcal infection [Not Recovered/Not Resolved]
  - Epistaxis [Not Recovered/Not Resolved]
  - Psychotic disorder [Not Recovered/Not Resolved]
  - Anxiety [Not Recovered/Not Resolved]
  - Tic [Not Recovered/Not Resolved]
  - Aggression [Not Recovered/Not Resolved]

NARRATIVE: CASE EVENT DATE: 2017
